FAERS Safety Report 8140957-9 (Version None)
Quarter: 2012Q1

REPORT INFORMATION
  Report Type: 
  Country: None (occurrence: None)
  Receive Date: 20120216
  Receipt Date: 20120209
  Transmission Date: 20120608
  Serious: Yes (Hospitalization)
  Sender: FDA-Public Use
  Company Number: PHHO2011US16244

PATIENT
  Sex: Female

DRUGS (4)
  1. ZOCOR [Concomitant]
     Dosage: UNK
     Dates: start: 20090827
  2. MYCOPHENOLATE MOFETIL (CELLCEPT) [Suspect]
     Indication: RENAL TRANSPLANT
     Dosage: 1000 MG, BID
     Dates: start: 20080214
  3. PREDNISONE TAB [Suspect]
     Indication: INFLAMMATION
     Dosage: UNK
  4. CYCLOSPORINE [Suspect]
     Indication: RENAL TRANSPLANT
     Dosage: 200 MG, QD
     Route: 048
     Dates: start: 20101108

REACTIONS (2)
  - GRAFT LOSS [None]
  - CHRONIC ALLOGRAFT NEPHROPATHY [None]
